FAERS Safety Report 9231339 (Version 1)
Quarter: 2013Q2

REPORT INFORMATION
  Report Type: Spontaneous
  Country: US (occurrence: US)
  Receive Date: 20130415
  Receipt Date: 20130415
  Transmission Date: 20140414
  Serious: Yes (Death)
  Sender: FDA-Public Use
  Company Number: US-ROCHE-1213353

PATIENT
  Sex: Female

DRUGS (7)
  1. XELODA [Suspect]
     Indication: BREAST CANCER
     Route: 048
     Dates: start: 20121109
  2. XELODA [Suspect]
     Indication: RENAL CANCER
  3. ONDANSETRON [Concomitant]
     Route: 048
  4. EXEMESTANE [Concomitant]
     Route: 048
  5. OXYCODONE [Concomitant]
     Route: 048
  6. OXYCONTIN [Concomitant]
     Route: 048
  7. VIIBRYD [Concomitant]
     Route: 048

REACTIONS (1)
  - Death [Fatal]
